FAERS Safety Report 4386140-4 (Version None)
Quarter: 2004Q2

REPORT INFORMATION
  Report Type: 
  Country: None (occurrence: None)
  Receive Date: 20040625
  Receipt Date: 20040625
  Transmission Date: 20050107
  Serious: No
  Sender: FDA-Public Use
  Company Number: None

PATIENT
  Age: 65 Year
  Sex: Male

DRUGS (3)
  1. DIAZEPAM [Suspect]
     Indication: BRONCHOALVEOLAR LAVAGE
     Dates: start: 20040427
  2. PROMETHAZINE [Suspect]
     Dates: start: 20040427
  3. MORPHINE [Suspect]
     Dates: start: 20040427

REACTIONS (7)
  - ATRIAL FIBRILLATION [None]
  - BLOOD PRESSURE IMMEASURABLE [None]
  - MOVEMENT DISORDER [None]
  - OXYGEN SATURATION DECREASED [None]
  - PULSE PRESSURE DECREASED [None]
  - RESPIRATORY RATE INCREASED [None]
  - SEDATION [None]
